FAERS Safety Report 20035061 (Version 2)
Quarter: 2021Q4

REPORT INFORMATION
  Report Type: Spontaneous
  Country: None (occurrence: CA)
  Receive Date: 20211104
  Receipt Date: 20211129
  Transmission Date: 20220303
  Serious: Yes (Hospitalization)
  Sender: FDA-Public Use
  Company Number: CA-Jacobus Pharmaceutical Company, Inc.-2121484

PATIENT
  Age: 3 Year
  Sex: Male

DRUGS (4)
  1. RUZURGI [Suspect]
     Active Substance: AMIFAMPRIDINE
     Indication: Congenital myasthenic syndrome
     Dates: start: 2018
  2. MESTINON [Concomitant]
     Active Substance: PYRIDOSTIGMINE BROMIDE
  3. VITAMIN D [Concomitant]
     Active Substance: VITAMIN D NOS
     Route: 048
  4. POLYETHYLENE GLYCOLS [Concomitant]
     Active Substance: POLYETHYLENE GLYCOLS

REACTIONS (3)
  - Cardio-respiratory arrest [Recovered/Resolved]
  - Respiratory failure [Recovered/Resolved]
  - Respiratory tract infection viral [Recovered/Resolved]

NARRATIVE: CASE EVENT DATE: 20180101
